FAERS Safety Report 25063623 (Version 1)
Quarter: 2025Q1

REPORT INFORMATION
  Report Type: Spontaneous
  Country: US (occurrence: None)
  Receive Date: 20250310
  Receipt Date: 20250310
  Transmission Date: 20250408
  Serious: Yes (Life-Threatening, Hospitalization)
  Sender: FDA-CTU
  Company Number: None

PATIENT
  Age: 71 Year
  Sex: Male

DRUGS (3)
  1. XARELTO [Suspect]
     Active Substance: RIVAROXABAN
     Indication: Atrial fibrillation
     Dosage: 1.00 UNK- UNKNOWN  DAILY ORAL ?
     Route: 048
     Dates: start: 20180606, end: 20240202
  2. CLOPIDOGREL BISULFATE [Suspect]
     Active Substance: CLOPIDOGREL BISULFATE
     Dosage: 1.00 UNK - UNKNOWN DAILY ORAL
     Route: 048
     Dates: start: 20240126
  3. ASPIRIN [Suspect]
     Active Substance: ASPIRIN

REACTIONS (9)
  - Subarachnoid haemorrhage [None]
  - Hypoaesthesia [None]
  - Movement disorder [None]
  - Dysarthria [None]
  - Hypoaesthesia [None]
  - Feeling cold [None]
  - Acute myocardial infarction [None]
  - Fatigue [None]
  - Nausea [None]

NARRATIVE: CASE EVENT DATE: 20240202
